FAERS Safety Report 23876768 (Version 1)
Quarter: 2024Q2

REPORT INFORMATION
  Report Type: Spontaneous
  Country: US (occurrence: US)
  Receive Date: 20240521
  Receipt Date: 20240521
  Transmission Date: 20240715
  Serious: No
  Sender: FDA-Public Use
  Company Number: US-E2BLSMVVAL-SPO/USA/24/0007302

PATIENT
  Age: 72 Year
  Sex: Female

DRUGS (1)
  1. IBANDRONATE SODIUM [Suspect]
     Active Substance: IBANDRONATE SODIUM
     Indication: Osteoporosis
     Dosage: ONCE A MONTH
     Dates: end: 20240503

REACTIONS (3)
  - Back pain [Unknown]
  - Pain in jaw [Unknown]
  - Pain [Unknown]
